FAERS Safety Report 6830554-7 (Version None)
Quarter: 2010Q3

REPORT INFORMATION
  Report Type: 
  Country: None (occurrence: None)
  Receive Date: 20100712
  Receipt Date: 20100628
  Transmission Date: 20110219
  Serious: Yes (Hospitalization, Other)
  Sender: FDA-Public Use
  Company Number: US-JNJFOC-20100608538

PATIENT
  Sex: Female
  Weight: 90.72 kg

DRUGS (17)
  1. SIMPONI [Suspect]
     Indication: PSORIATIC ARTHROPATHY
     Route: 058
  2. OMEPRAZOLE [Concomitant]
  3. ESTRACE [Concomitant]
  4. OXYBUTYNIN CHLORIDE [Concomitant]
  5. LISINOPRIL [Concomitant]
  6. METFORMIN HCL [Concomitant]
  7. IRON [Concomitant]
  8. LYRICA [Concomitant]
  9. BUMETANIDE [Concomitant]
  10. DIAZEPAM [Concomitant]
  11. CYMBALTA [Concomitant]
  12. NORTRIPTYLINE [Concomitant]
  13. LORCET-HD [Concomitant]
  14. DURAGESIC-100 [Concomitant]
  15. ZANAFLEX [Concomitant]
  16. BETAMETHASONE [Concomitant]
     Route: 061
  17. METOPROLOL [Concomitant]

REACTIONS (2)
  - ATRIAL FLUTTER [None]
  - HISTOPLASMOSIS [None]
